FAERS Safety Report 4506525-2 (Version None)
Quarter: 2004Q4

REPORT INFORMATION
  Report Type: 
  Country: None (occurrence: None)
  Receive Date: 20041122
  Receipt Date: 20041109
  Transmission Date: 20050328
  Serious: Yes (Death, Life-Threatening, Hospitalization, Other)
  Sender: FDA-Public Use
  Company Number: CA-JNJFOC-20040905200

PATIENT
  Sex: Female
  Weight: 50 kg

DRUGS (21)
  1. CAELYX [Suspect]
     Indication: OVARIAN CANCER
     Route: 042
     Dates: start: 20040730, end: 20040910
  2. CARBOPLATIN [Suspect]
     Indication: OVARIAN CANCER
     Route: 042
     Dates: start: 20040730, end: 20040910
  3. MULTI-VITAMIN [Concomitant]
     Route: 049
  4. MULTI-VITAMIN [Concomitant]
     Route: 049
  5. MULTI-VITAMIN [Concomitant]
     Route: 049
  6. MULTI-VITAMIN [Concomitant]
     Route: 049
  7. MULTI-VITAMIN [Concomitant]
     Route: 049
  8. MULTI-VITAMIN [Concomitant]
     Route: 049
  9. MULTI-VITAMIN [Concomitant]
     Route: 049
  10. MULTI-VITAMIN [Concomitant]
     Indication: NUTRITIONAL SUPPORT
     Route: 049
  11. PROCHLORPERAZINE [Concomitant]
     Indication: NAUSEA
     Dosage: PRN
     Route: 049
  12. LORAZEPAM [Concomitant]
     Indication: INSOMNIA
     Route: 049
  13. LORAZEPAM [Concomitant]
     Indication: ANXIETY
     Route: 049
  14. TYLENOL W/ CODEINE NO. 3 [Concomitant]
     Route: 049
  15. TYLENOL W/ CODEINE NO. 3 [Concomitant]
     Indication: PAIN
     Dosage: 1-2 EVERY 4 HOURS AS NEEDED
     Route: 049
  16. DOMPERIDONE [Concomitant]
     Indication: NAUSEA
     Route: 049
  17. ARTHROTEC [Concomitant]
     Route: 049
  18. ARTHROTEC [Concomitant]
     Indication: PAIN
     Dosage: 50/200 MG
     Route: 049
  19. DOCUSATE SODIUM [Concomitant]
     Indication: CONSTIPATION
     Dosage: 1-2 TABLETS TWICE A DAY.
     Route: 049
  20. SENOKOT [Concomitant]
     Indication: CONSTIPATION
     Dosage: 4 TABLETS TWICE A DAY
     Route: 049
  21. DEXAMETHASONE [Concomitant]
     Indication: NAUSEA
     Route: 049

REACTIONS (10)
  - ABDOMINAL DISTENSION [None]
  - HEPATIC STEATOSIS [None]
  - HIATUS HERNIA [None]
  - INTESTINAL OBSTRUCTION [None]
  - MALIGNANT NEOPLASM PROGRESSION [None]
  - NAUSEA [None]
  - PANCYTOPENIA [None]
  - PLEURAL EFFUSION [None]
  - PURPURA [None]
  - VOMITING [None]
